FAERS Safety Report 21119662 (Version 3)
Quarter: 2022Q3

REPORT INFORMATION
  Report Type: Spontaneous
  Country: IT (occurrence: None)
  Receive Date: 20220722
  Receipt Date: 20220802
  Transmission Date: 20221026
  Serious: Yes (Other)
  Sender: FDA-Public Use
  Company Number: 2022A256552

PATIENT
  Age: 44 Year
  Sex: Male

DRUGS (9)
  1. TICAGRELOR [Interacting]
     Active Substance: TICAGRELOR
     Indication: Myocardial infarction
     Route: 048
  2. VEMLIDY [Interacting]
     Active Substance: TENOFOVIR ALAFENAMIDE FUMARATE
     Indication: Product used for unknown indication
     Route: 065
  3. CLOPIDOGREL [Interacting]
     Active Substance: CLOPIDOGREL BISULFATE
     Indication: Myocardial infarction
     Route: 065
  4. ATORVASTATIN [Interacting]
     Active Substance: ATORVASTATIN
     Indication: Myocardial infarction
     Dosage: 80 MG/DAY
     Route: 065
  5. ATORVASTATIN [Interacting]
     Active Substance: ATORVASTATIN
     Indication: Myocardial infarction
     Dosage: 20 MG/DAY
     Route: 065
  6. DOLUTEGRAVIR [Interacting]
     Active Substance: DOLUTEGRAVIR
     Indication: HIV infection
     Route: 065
  7. DARUNAVIR [Interacting]
     Active Substance: DARUNAVIR
     Indication: HIV infection
     Route: 065
  8. COBICISTAT [Interacting]
     Active Substance: COBICISTAT
     Indication: HIV infection
     Route: 065
  9. EMTRICITABINE [Interacting]
     Active Substance: EMTRICITABINE
     Indication: HIV infection
     Route: 065

REACTIONS (1)
  - Drug interaction [Unknown]
